FAERS Safety Report 8592954-7 (Version None)
Quarter: 2012Q3

REPORT INFORMATION
  Report Type: 
  Country: None (occurrence: None)
  Receive Date: 20120814
  Receipt Date: 20120807
  Transmission Date: 20120928
  Serious: Yes (Life-Threatening)
  Sender: FDA-Public Use
  Company Number: IT-BAYER-2012-004343

PATIENT
  Age: 80 Year
  Sex: Female

DRUGS (4)
  1. NEXAVAR [Suspect]
     Indication: RENAL CELL CARCINOMA
     Dosage: DAILY DOSE 400 MG
     Route: 048
     Dates: start: 20081007, end: 20081014
  2. ASPIRIN [Suspect]
     Dosage: DAILY DOSE 100 MG
     Route: 048
     Dates: start: 20070101, end: 20081104
  3. NEBIVOLOL HCL [Concomitant]
     Dosage: DAILY DOSE 5 MG
     Route: 048
     Dates: start: 20070101, end: 20081104
  4. TRAMADOL HCL [Concomitant]
     Dosage: UNK
     Route: 048
     Dates: start: 20070101, end: 20081104

REACTIONS (2)
  - HYPERTENSION [None]
  - ABDOMINAL PAIN [None]
